FAERS Safety Report 16540498 (Version 1)
Quarter: 2019Q3

REPORT INFORMATION
  Report Type: Spontaneous
  Country: US (occurrence: US)
  Receive Date: 20190525
  Receipt Date: 20190525
  Transmission Date: 20191004
  Serious: No
  Sender: FDA-Public Use
  Company Number: None

PATIENT
  Age: 24 Year
  Sex: Female

DRUGS (1)
  1. TASIGNA [Suspect]
     Active Substance: NILOTINIB
     Route: 048
     Dates: start: 20180427, end: 20180718

REACTIONS (5)
  - Muscle atrophy [None]
  - Fatigue [None]
  - Alopecia [None]
  - Furuncle [None]
  - Osteopenia [None]

NARRATIVE: CASE EVENT DATE: 20190525
